FAERS Safety Report 5117509-8 (Version None)
Quarter: 2006Q3

REPORT INFORMATION
  Report Type: 
  Country: None (occurrence: None)
  Receive Date: 20060929
  Receipt Date: 20041102
  Transmission Date: 20061208
  Serious: Yes (Disabling)
  Sender: FDA-Public Use
  Company Number: US-ROCHE-385470

PATIENT
  Age: 22 Year
  Sex: Female
  Weight: 45.4 kg

DRUGS (1)
  1. ACCUTANE [Suspect]
     Indication: ACNE
     Route: 048
     Dates: start: 19980515, end: 19981015

REACTIONS (54)
  - ABSCESS [None]
  - ADJUSTMENT DISORDER WITH MIXED ANXIETY AND DEPRESSED MOOD [None]
  - ALOPECIA [None]
  - ARTHRALGIA [None]
  - ARTHRITIS REACTIVE [None]
  - AUTOIMMUNE DISORDER [None]
  - BLOOD ALBUMIN DECREASED [None]
  - BLOOD CALCIUM DECREASED [None]
  - CHRONIC FATIGUE SYNDROME [None]
  - CLOSTRIDIUM DIFFICILE TOXIN TEST POSITIVE [None]
  - COLITIS [None]
  - COLITIS ULCERATIVE [None]
  - CROHN'S DISEASE [None]
  - CUSHINGOID [None]
  - DEHYDRATION [None]
  - DEPRESSION [None]
  - DYSPEPSIA [None]
  - ENTERITIS [None]
  - ENTERITIS INFECTIOUS [None]
  - GASTROINTESTINAL DISORDER [None]
  - HAEMATURIA [None]
  - HAEMOGLOBIN DECREASED [None]
  - HEADACHE [None]
  - HYPOKALAEMIA [None]
  - ILL-DEFINED DISORDER [None]
  - INFLAMMATORY BOWEL DISEASE [None]
  - INSOMNIA [None]
  - INTESTINAL HAEMORRHAGE [None]
  - JOB DISSATISFACTION [None]
  - LABORATORY TEST ABNORMAL [None]
  - LOSS OF EMPLOYMENT [None]
  - MERYCISM [None]
  - MOOD ALTERED [None]
  - MULTI-ORGAN DISORDER [None]
  - NASOPHARYNGEAL DISORDER [None]
  - NERVOUSNESS [None]
  - NIGHT BLINDNESS [None]
  - OEDEMA PERIPHERAL [None]
  - OSTEOARTHRITIS [None]
  - OSTEOPENIA [None]
  - OSTEOPOROSIS [None]
  - PERICARDITIS [None]
  - PLATELET COUNT INCREASED [None]
  - PROTEIN TOTAL DECREASED [None]
  - PROTEINURIA [None]
  - PSEUDOPOLYPOSIS [None]
  - RECTAL HAEMORRHAGE [None]
  - RENAL CYST [None]
  - SEBORRHOEA [None]
  - SMALL INTESTINAL OBSTRUCTION [None]
  - SOMNOLENCE [None]
  - STOMATITIS [None]
  - STRESS [None]
  - SYSTEMIC LUPUS ERYTHEMATOSUS [None]
